FAERS Safety Report 6257933-3 (Version None)
Quarter: 2009Q3

REPORT INFORMATION
  Report Type: 
  Country: None (occurrence: None)
  Receive Date: 20090707
  Receipt Date: 20090624
  Transmission Date: 20100115
  Serious: Yes (Hospitalization, Other)
  Sender: FDA-Public Use
  Company Number: JP-PFIZER INC-2009234879

PATIENT
  Age: 29 Year

DRUGS (4)
  1. SOLANAX [Suspect]
  2. ROHYPNOL [Suspect]
  3. NITRAZEPAM [Suspect]
  4. ANAFRANIL [Suspect]

REACTIONS (6)
  - ANAEMIA [None]
  - CAESAREAN SECTION [None]
  - OVERDOSE [None]
  - PELVIC FRACTURE [None]
  - RENAL INJURY [None]
  - SUICIDE ATTEMPT [None]
